FAERS Safety Report 4296700-7 (Version None)
Quarter: 2004Q1

REPORT INFORMATION
  Report Type: 
  Country: None (occurrence: None)
  Receive Date: 20040217
  Receipt Date: 20020904
  Transmission Date: 20041129
  Serious: Yes (Life-Threatening, Other)
  Sender: FDA-Public Use
  Company Number: WAES 0209GBR00066

PATIENT
  Age: 86 Year
  Sex: Female
  Weight: 95 kg

DRUGS (7)
  1. ACETAMINOPHEN [Concomitant]
  2. FOSAMAX [Concomitant]
     Route: 048
  3. CITALOPRAM [Concomitant]
     Indication: DEPRESSION
     Route: 048
  4. VIOXX [Suspect]
     Indication: OSTEOARTHRITIS
     Route: 048
     Dates: start: 20020813, end: 20020820
  5. SENNA [Concomitant]
     Indication: CONSTIPATION
     Route: 048
  6. TOLTERODINE [Concomitant]
     Route: 048
  7. TRAMADOL [Suspect]

REACTIONS (1)
  - NEUTROPENIA [None]
